FAERS Safety Report 7170783-9 (Version None)
Quarter: 2010Q4

REPORT INFORMATION
  Report Type: 
  Country: None (occurrence: None)
  Receive Date: 20101214
  Receipt Date: 20101214
  Transmission Date: 20110411
  Serious: Yes (Death)
  Sender: FDA-Public Use
  Company Number: None

PATIENT
  Age: 56 Year
  Sex: Male

DRUGS (4)
  1. REVLIMID [Suspect]
     Indication: MULTIPLE MYELOMA
     Dosage: 10MG DAILY ORALLY
     Route: 048
     Dates: start: 20091204, end: 20100117
  2. GABAPENTIN [Concomitant]
  3. AMLODIPINE [Concomitant]
  4. ACYCLOVIR [Concomitant]

REACTIONS (1)
  - NO ADVERSE EVENT [None]
